FAERS Safety Report 9132973 (Version 1)
Quarter: 2013Q1

REPORT INFORMATION
  Report Type: Spontaneous
  Country: PR (occurrence: PR)
  Receive Date: 20130301
  Receipt Date: 20130301
  Transmission Date: 20140127
  Serious: Yes (Other)
  Sender: FDA-Public Use
  Company Number: PHHY2013PR020333

PATIENT
  Age: 47 Year
  Sex: Male

DRUGS (1)
  1. GABAPENTIN [Suspect]

REACTIONS (8)
  - Disorientation [Unknown]
  - Abnormal behaviour [Unknown]
  - Somnambulism [Unknown]
  - Depression [Unknown]
  - Amnesia [Unknown]
  - Convulsion [Unknown]
  - Insomnia [Unknown]
  - Memory impairment [Unknown]
